FAERS Safety Report 9448802 (Version 1)
Quarter: 2013Q3

REPORT INFORMATION
  Report Type: Report from Study
  Country: US (occurrence: US)
  Receive Date: 20130808
  Receipt Date: 20130808
  Transmission Date: 20140515
  Serious: Yes (Hospitalization)
  Sender: FDA-Public Use
  Company Number: US-US-EMD SERONO, INC.-7228247

PATIENT
  Age: 71 Year
  Sex: Female

DRUGS (3)
  1. REBIF [Suspect]
     Indication: PRODUCT USED FOR UNKNOWN INDICATION
     Route: 058
     Dates: start: 20100104
  2. CARBAMAZEPINE [Concomitant]
     Indication: TRIGEMINAL NEURALGIA
  3. GABAPENTIN [Concomitant]
     Indication: TRIGEMINAL NEURALGIA

REACTIONS (2)
  - Cystitis [Recovered/Resolved]
  - Trigeminal neuralgia [Unknown]
